FAERS Safety Report 24363752 (Version 1)
Quarter: 2024Q3

REPORT INFORMATION
  Report Type: Spontaneous
  Country: FR (occurrence: FR)
  Receive Date: 20240925
  Receipt Date: 20240925
  Transmission Date: 20241017
  Serious: Yes (Other)
  Sender: GUERBET
  Company Number: FR-GUERBETG-FR-20240337

PATIENT
  Age: 43 Year
  Sex: Female
  Weight: 90 kg

DRUGS (1)
  1. DOTAREM [Suspect]
     Active Substance: GADOTERATE MEGLUMINE
     Indication: Magnetic resonance imaging head
     Route: 042
     Dates: start: 20240912, end: 20240912

REACTIONS (4)
  - Pelvic pain [Unknown]
  - Pain in extremity [Unknown]
  - Chills [Unknown]
  - Erythema [Unknown]

NARRATIVE: CASE EVENT DATE: 20240912
